FAERS Safety Report 5108779-0 (Version None)
Quarter: 2006Q3

REPORT INFORMATION
  Report Type: 
  Country: None (occurrence: None)
  Receive Date: 20060920
  Receipt Date: 20060914
  Transmission Date: 20061208
  Serious: Yes (Other)
  Sender: FDA-Public Use
  Company Number: CA-BRISTOL-MYERS SQUIBB COMPANY-13510003

PATIENT

DRUGS (2)
  1. IRBESARTAN [Suspect]
  2. PLACEBO [Suspect]

REACTIONS (1)
  - DEATH [None]
